FAERS Safety Report 9512028 (Version 1)
Quarter: 2013Q3

REPORT INFORMATION
  Report Type: Spontaneous
  Country: ES (occurrence: ES)
  Receive Date: 20130910
  Receipt Date: 20130910
  Transmission Date: 20140515
  Serious: Yes (Other)
  Sender: FDA-Public Use
  Company Number: ES-AMGEN-ESPSP2013061970

PATIENT
  Sex: 0

DRUGS (3)
  1. CINACALCET HCL [Suspect]
     Indication: HYPERPARATHYROIDISM SECONDARY
     Dosage: 20 MG/M2, QD
     Route: 065
  2. VITAMIN D                          /00107901/ [Concomitant]
  3. CALCIUM [Concomitant]
     Indication: HYPERCALCAEMIA
     Route: 048

REACTIONS (2)
  - Therapeutic response decreased [Unknown]
  - Hypercalcaemia [Unknown]
